FAERS Safety Report 7540265-0 (Version None)
Quarter: 2011Q2

REPORT INFORMATION
  Report Type: 
  Country: None (occurrence: None)
  Receive Date: 20110610
  Receipt Date: 20110527
  Transmission Date: 20111010
  Serious: Yes (Other)
  Sender: FDA-Public Use
  Company Number: PHEH2009US13314

PATIENT
  Sex: Female

DRUGS (9)
  1. GLEEVEC [Suspect]
     Dosage: 200 MG, QD
     Dates: start: 20090428
  2. GLEEVEC [Suspect]
     Dosage: UNK
     Dates: start: 20100701
  3. OSCAL [Concomitant]
     Dosage: 500 MG, QD
     Route: 048
  4. PHENERGAN HCL [Concomitant]
     Indication: VOMITING
  5. GLEEVEC [Suspect]
     Indication: CHRONIC MYELOID LEUKAEMIA
     Dosage: 400 MG, BID
     Route: 048
     Dates: start: 20090319, end: 20090415
  6. LYRICA [Concomitant]
     Dosage: 75 MG, BID
     Route: 048
     Dates: start: 20070201
  7. PHENERGAN HCL [Concomitant]
     Indication: NAUSEA
     Dosage: 12.5 - 25 MG
     Route: 048
     Dates: start: 20090330
  8. GLEEVEC [Suspect]
     Dosage: 400 MG, QD
     Route: 048
     Dates: start: 20100927
  9. SINEMET [Concomitant]
     Dosage: TID
     Route: 048
     Dates: start: 20030202

REACTIONS (36)
  - WHITE BLOOD CELL COUNT DECREASED [None]
  - FALL [None]
  - IRON DEFICIENCY [None]
  - ABDOMINAL PAIN [None]
  - MYALGIA [None]
  - DIZZINESS [None]
  - GASTROOESOPHAGEAL REFLUX DISEASE [None]
  - DRUG INTOLERANCE [None]
  - INSOMNIA [None]
  - FATIGUE [None]
  - HIP FRACTURE [None]
  - ABDOMINAL DISTENSION [None]
  - HEADACHE [None]
  - ARTHRALGIA [None]
  - VOMITING [None]
  - HYPOAESTHESIA [None]
  - ASTHENIA [None]
  - DYSGEUSIA [None]
  - PERIORBITAL OEDEMA [None]
  - NAUSEA [None]
  - ORAL PAIN [None]
  - HEPATIC ENZYME ABNORMAL [None]
  - SWELLING [None]
  - FLUID RETENTION [None]
  - DYSPNOEA [None]
  - ANXIETY [None]
  - DYSPEPSIA [None]
  - OEDEMA PERIPHERAL [None]
  - THROMBOCYTOPENIA [None]
  - PULMONARY GRANULOMA [None]
  - HAEMOGLOBIN DECREASED [None]
  - MALAISE [None]
  - BURNING SENSATION [None]
  - PARAESTHESIA [None]
  - CONSTIPATION [None]
  - SINUS CONGESTION [None]
